FAERS Safety Report 8277959-8 (Version None)
Quarter: 2012Q2

REPORT INFORMATION
  Report Type: 
  Country: None (occurrence: None)
  Receive Date: 20120412
  Receipt Date: 20120405
  Transmission Date: 20120825
  Serious: Yes (Hospitalization)
  Sender: FDA-Public Use
  Company Number: US-US-EMD SERONO, INC.-235456J08USA

PATIENT
  Sex: Male

DRUGS (5)
  1. REBIF [Suspect]
     Route: 058
     Dates: start: 20101209
  2. KEPPRA [Concomitant]
     Indication: CONVULSION
  3. REBIF [Suspect]
     Indication: MULTIPLE SCLEROSIS
     Route: 058
     Dates: start: 20051021, end: 20090109
  4. VALIUM [Concomitant]
     Indication: PRODUCT USED FOR UNKNOWN INDICATION
  5. PHENYTEK [Concomitant]
     Indication: CONVULSION
     Dates: start: 20030101

REACTIONS (2)
  - DRUG HYPERSENSITIVITY [None]
  - GRAND MAL CONVULSION [None]
